FAERS Safety Report 8519662-2 (Version None)
Quarter: 2012Q3

REPORT INFORMATION
  Report Type: 
  Country: None (occurrence: None)
  Receive Date: 20120719
  Receipt Date: 20120712
  Transmission Date: 20120928
  Serious: No
  Sender: FDA-Public Use
  Company Number: US-009507513-1207USA003862

PATIENT

DRUGS (4)
  1. RIBASPHERE [Suspect]
     Dosage: 600 MG, UNK
  2. PEGASYS [Suspect]
  3. VICTRELIS [Suspect]
     Indication: HEPATITIS C
     Dosage: 800 MG, TID
     Route: 048
     Dates: start: 20120220
  4. RIBASPHERE [Suspect]
     Dosage: 400 MG, UNK

REACTIONS (1)
  - ANAEMIA [None]
